FAERS Safety Report 10389968 (Version 2)
Quarter: 2014Q3

REPORT INFORMATION
  Report Type: Spontaneous
  Country: US (occurrence: None)
  Receive Date: 20140813
  Receipt Date: 20140815
  Transmission Date: 20150326
  Serious: Yes (Death, Hospitalization)
  Sender: FDA-Public Use
  Company Number: 2014SGN00882

PATIENT
  Sex: Male

DRUGS (1)
  1. BRENTUXIMAB VEDOTIN [Suspect]
     Active Substance: BRENTUXIMAB VEDOTIN
     Indication: MASTOCYTOSIS
     Dosage: Q21D
     Route: 042
     Dates: start: 20140708, end: 20140708

REACTIONS (3)
  - Cerebral thrombosis [None]
  - Haemorrhage intracranial [None]
  - Platelet count decreased [None]

NARRATIVE: CASE EVENT DATE: 20140713
